FAERS Safety Report 19167433 (Version 1)
Quarter: 2021Q2

REPORT INFORMATION
  Report Type: Report from Study
  Country: RU (occurrence: RU)
  Receive Date: 20210422
  Receipt Date: 20210422
  Transmission Date: 20210717
  Serious: Yes (Death, Other)
  Sender: FDA-Public Use
  Company Number: RU-ADIENNEP-2021AD000275

PATIENT

DRUGS (4)
  1. ATG (RABBIT) [Suspect]
     Active Substance: LAPINE T-LYMPHOCYTE IMMUNE GLOBULIN
     Indication: PROPHYLAXIS AGAINST GRAFT VERSUS HOST DISEASE
     Dosage: 5 MG/KG (2.5 MG/KG/D, ON D?5, ?4)
  2. BORTEZOMIB. [Suspect]
     Active Substance: BORTEZOMIB
     Indication: ALLOGENIC STEM CELL TRANSPLANTATION
     Dosage: 5.2 MG/M2 (1.3 MG/M2/D, ON D?5,?2,+2,+5)
  3. FLUDARABINE [Suspect]
     Active Substance: FLUDARABINE PHOSPHATE
     Indication: ALLOGENIC STEM CELL TRANSPLANTATION
     Dosage: 150 MG/M2 (30 MG/M2/D, FROM D?6 TO ?2)
  4. THIOTEPA. [Suspect]
     Active Substance: THIOTEPA
     Indication: ALLOGENIC STEM CELL TRANSPLANTATION
     Dosage: 600 MG/M2 (300 MG/M2/D, ON D?6 AND ?5)

REACTIONS (2)
  - Acute graft versus host disease [Unknown]
  - Adenovirus infection [Fatal]
